FAERS Safety Report 17271874 (Version 2)
Quarter: 2020Q3

REPORT INFORMATION
  Report Type: Spontaneous
  Country: US (occurrence: US)
  Receive Date: 20200115
  Receipt Date: 20200928
  Transmission Date: 20201102
  Serious: No
  Sender: FDA-Public Use
  Company Number: US-009507513-1912USA008077

PATIENT
  Age: 70 Year
  Sex: Female

DRUGS (2)
  1. PEGINTRON [Suspect]
     Active Substance: PEGINTERFERON ALFA-2B
     Indication: POLYCYTHAEMIA VERA
     Dosage: 50 MICROGRAM, FREQUENCY: OTHER
     Route: 058
     Dates: start: 202001
  2. PEGINTRON [Suspect]
     Active Substance: PEGINTERFERON ALFA-2B
     Indication: METASTASES TO SKIN
     Dosage: 50MCG, Q3W(FREQUENCY ALSO REPORTED AS OTHER) STRENGTH: 50MCG/5ML
     Route: 058
     Dates: start: 201912

REACTIONS (3)
  - Inappropriate schedule of product administration [Unknown]
  - Product use in unapproved indication [Unknown]
  - Off label use [Unknown]

NARRATIVE: CASE EVENT DATE: 201912
